FAERS Safety Report 6199458-X (Version None)
Quarter: 2009Q2

REPORT INFORMATION
  Report Type: 
  Country: None (occurrence: None)
  Receive Date: 20090522
  Receipt Date: 20090515
  Transmission Date: 20091009
  Serious: Yes (Other)
  Sender: FDA-Public Use
  Company Number: CO-PFIZER INC-2009212299

PATIENT

DRUGS (3)
  1. NORVASC [Suspect]
     Indication: SYSTOLIC HYPERTENSION
     Dosage: 5 MG, 1X/DAY
     Route: 048
     Dates: start: 20090507, end: 20090508
  2. NORVASC [Suspect]
     Dosage: 2.5 MG, 1X/DAY
     Dates: start: 20090508, end: 20090511
  3. LOVASTATIN [Concomitant]
     Route: 048
     Dates: end: 20090508

REACTIONS (4)
  - ABDOMINAL PAIN LOWER [None]
  - ANURIA [None]
  - DYSURIA [None]
  - HYPERTENSION [None]
